FAERS Safety Report 14029287 (Version 1)
Quarter: 2017Q4

REPORT INFORMATION
  Report Type: Spontaneous
  Country: US (occurrence: None)
  Receive Date: 20171002
  Receipt Date: 20171002
  Transmission Date: 20180321
  Serious: Yes (Death)
  Sender: FDA-Public Use
  Company Number: None

PATIENT
  Age: 69 Year
  Sex: Male

DRUGS (11)
  1. LONSURF [Suspect]
     Active Substance: TIPIRACIL HYDROCHLORIDE\TRIFLURIDINE
     Indication: NEOPLASM MALIGNANT
     Dosage: THREE 20MG TABS  TWICE DAILY ORALLY
     Route: 048
     Dates: start: 20170703
  2. BRILINTA [Concomitant]
     Active Substance: TICAGRELOR
  3. LIPITOR [Concomitant]
     Active Substance: ATORVASTATIN CALCIUM
  4. METOPROLOL. [Concomitant]
     Active Substance: METOPROLOL
  5. SYMBICORT [Concomitant]
     Active Substance: BUDESONIDE\FORMOTEROL FUMARATE DIHYDRATE
  6. PROTONIX [Concomitant]
     Active Substance: PANTOPRAZOLE SODIUM
  7. FENTANYL. [Concomitant]
     Active Substance: FENTANYL
  8. HYDROCODONE [Concomitant]
     Active Substance: HYDROCODONE
  9. METFORMIN [Concomitant]
     Active Substance: METFORMIN HYDROCHLORIDE
  10. ZETIA [Concomitant]
     Active Substance: EZETIMIBE
  11. ISOSORBIDE. [Concomitant]
     Active Substance: ISOSORBIDE

REACTIONS (1)
  - Death [None]

NARRATIVE: CASE EVENT DATE: 20170929
